FAERS Safety Report 4956374-6 (Version None)
Quarter: 2006Q1

REPORT INFORMATION
  Report Type: 
  Country: None (occurrence: None)
  Receive Date: 20060323
  Receipt Date: 20060310
  Transmission Date: 20060701
  Serious: Yes (Hospitalization)
  Sender: FDA-Public Use
  Company Number: 2006035537

PATIENT
  Age: 90 Year
  Sex: Female
  Weight: 65 kg

DRUGS (6)
  1. ALDACTONE [Suspect]
     Indication: ESSENTIAL HYPERTENSION
     Dosage: 75 MG (75 MG, 1 IN 1 D), ORAL
     Route: 048
     Dates: end: 20051222
  2. SPECTRAL (ACEBUTOLOL HYDROCHLORIDE) [Suspect]
     Indication: ESSENTIAL HYPERTENSION
     Dosage: SEE IMAGE, ORAL
     Route: 048
     Dates: start: 20051216
  3. TRIVASTAL (PIRIBEDIL) [Suspect]
     Indication: COGNITIVE DISORDER
     Dosage: (50 MG), ORAL
     Route: 048
     Dates: end: 20051222
  4. TRIVASTAL (PIRIBEDIL) [Suspect]
     Indication: PARKINSONISM
     Dosage: (50 MG), ORAL
     Route: 048
     Dates: end: 20051222
  5. KARDEGIC (ACETYLSALICYLATE LYSINE) [Suspect]
     Indication: MYOCARDIAL ISCHAEMIA
     Dosage: 75 MG (75 MG, 1 IN 1 D), ORAL
     Route: 048
  6. INIPOMP (PANTOPRAZOLE) [Suspect]
     Indication: ISCHAEMIC CARDIOMYOPATHY
     Dosage: 40 MG (40 MG, 1 IN 1 D), ORAL
     Route: 048
     Dates: end: 20051220

REACTIONS (14)
  - ACTIVITIES OF DAILY LIVING IMPAIRED [None]
  - AGITATION [None]
  - AKINESIA [None]
  - COGNITIVE DISORDER [None]
  - CONFUSIONAL STATE [None]
  - DIFFICULTY IN WALKING [None]
  - DISORIENTATION [None]
  - ESCHERICHIA URINARY TRACT INFECTION [None]
  - FALL [None]
  - HALLUCINATION, VISUAL [None]
  - MALNUTRITION [None]
  - MUSCLE RIGIDITY [None]
  - PARKINSONISM [None]
  - TREMOR [None]
